FAERS Safety Report 5940239-7 (Version None)
Quarter: 2008Q4

REPORT INFORMATION
  Report Type: 
  Country: None (occurrence: None)
  Receive Date: 20081104
  Receipt Date: 20081027
  Transmission Date: 20090506
  Serious: Yes (Hospitalization, Other)
  Sender: FDA-Public Use
  Company Number: US-AMGEN-QUU315635

PATIENT
  Sex: Female

DRUGS (2)
  1. ENBREL [Suspect]
     Indication: PSORIATIC ARTHROPATHY
     Route: 058
     Dates: start: 20080718, end: 20080801
  2. ISONIAZID [Concomitant]

REACTIONS (6)
  - FATIGUE [None]
  - HEPATIC ENZYME INCREASED [None]
  - HYPOTENSION [None]
  - MALAISE [None]
  - MULTIPLE MYELOMA [None]
  - PYREXIA [None]
